FAERS Safety Report 7913820-3 (Version None)
Quarter: 2011Q4

REPORT INFORMATION
  Report Type: 
  Country: None (occurrence: None)
  Receive Date: 20111115
  Receipt Date: 20111107
  Transmission Date: 20120403
  Serious: Yes (Other)
  Sender: FDA-Public Use
  Company Number: US-BAYER-2011-108567

PATIENT
  Age: 6 Year
  Sex: Female
  Weight: 22 kg

DRUGS (1)
  1. ALKA-SELTZER ORIGINAL [Suspect]
     Indication: ABDOMINAL PAIN UPPER
     Dosage: UNK, ONCE
     Route: 048
     Dates: start: 20111107, end: 20111107

REACTIONS (2)
  - URTICARIA [None]
  - LIP SWELLING [None]
